FAERS Safety Report 5265344-2 (Version None)
Quarter: 2007Q1

REPORT INFORMATION
  Report Type: 
  Country: None (occurrence: None)
  Receive Date: 20070314
  Receipt Date: 20070309
  Transmission Date: 20070707
  Serious: Yes (Hospitalization)
  Sender: FDA-Public Use
  Company Number: US-ROXANE LABORATORIES, INC-2007-DE-01460GD

PATIENT
  Age: 59 Year
  Sex: Female

DRUGS (16)
  1. CALCIUM CARBONATE [Suspect]
  2. VITAMIN D [Suspect]
  3. CIPROFLOXACIN [Concomitant]
     Indication: PSEUDOMONAS INFECTION
     Route: 042
  4. CIPROFLOXACIN [Concomitant]
     Indication: ESCHERICHIA BACTERAEMIA
  5. GENTAMICIN [Concomitant]
     Indication: PSEUDOMONAS INFECTION
     Route: 042
  6. GENTAMICIN [Concomitant]
     Indication: ESCHERICHIA BACTERAEMIA
  7. SIMVASTATIN [Concomitant]
  8. FUROSEMIDE [Concomitant]
  9. LISINOPRIL [Concomitant]
  10. METOPROLOL SUCCINATE [Concomitant]
  11. INSULIN [Concomitant]
     Indication: DIABETES MELLITUS NON-INSULIN-DEPENDENT
  12. SEVELAMER [Concomitant]
  13. FAMOTIDINE [Concomitant]
  14. GABAPENTIN [Concomitant]
  15. NARCOTICS [Concomitant]
     Indication: PAIN
  16. LAXATIVES [Concomitant]

REACTIONS (2)
  - CALCIPHYLAXIS [None]
  - SKIN ULCER [None]
